FAERS Safety Report 4324949-3 (Version None)
Quarter: 2004Q1

REPORT INFORMATION
  Report Type: 
  Country: None (occurrence: None)
  Receive Date: 20040326
  Receipt Date: 20020711
  Transmission Date: 20041129
  Serious: Yes (Hospitalization, Other)
  Sender: FDA-Public Use
  Company Number: US-BRISTOL-MYERS SQUIBB COMPANY-11949542

PATIENT
  Age: 69 Year
  Sex: Female

DRUGS (1)
  1. SERZONE [Suspect]
     Dosage: STARTED THERAPY AT 150 MG AT BEDTIME; DOASGE WAS AS HIGH AS 300 MG AT BEDTIME
     Route: 048
     Dates: start: 19991112, end: 20000111

REACTIONS (10)
  - CHOLECYSTITIS [None]
  - CHOLESTASIS [None]
  - CIRRHOSIS ALCOHOLIC [None]
  - DRUG TOXICITY [None]
  - GASTROENTERITIS NONINFECTIOUS [None]
  - HEPATIC FAILURE [None]
  - HEPATIC STEATOSIS [None]
  - HEPATITIS ACUTE [None]
  - LIVER TRANSPLANT [None]
  - PLEURAL EFFUSION [None]
